FAERS Safety Report 17918150 (Version 2)
Quarter: 2020Q3

REPORT INFORMATION
  Report Type: Spontaneous
  Country: US (occurrence: US)
  Receive Date: 20200619
  Receipt Date: 20200706
  Transmission Date: 20201103
  Serious: Yes (Hospitalization, Other)
  Sender: FDA-Public Use
  Company Number: US-009507513-2006USA005645

PATIENT
  Sex: Female
  Weight: 56.69 kg

DRUGS (12)
  1. GANIRELIX ACETATE INJECTION [Concomitant]
     Active Substance: GANIRELIX ACETATE
     Dosage: UNK
  2. LEUPROLIDE [Concomitant]
     Active Substance: LEUPROLIDE
     Dosage: UNK
  3. MENOPUR [Concomitant]
     Active Substance: FOLLITROPIN\LUTEINIZING HORMONE
     Dosage: UNK
  4. FOLLISTIM AQ [Suspect]
     Active Substance: FOLLITROPIN
  5. METANX [Concomitant]
     Active Substance: LEVOMEFOLATE CALCIUM\METHYLCOBALAMIN\PYRIDOXAL PHOSPHATE ANHYDROUS
     Dosage: UNK
  6. DECADRON [Concomitant]
     Active Substance: DEXAMETHASONE
     Dosage: UNK
  7. PREGNYL [Concomitant]
     Active Substance: CHORIOGONADOTROPIN ALFA
     Dosage: UNK
  8. NORTREL (LEVONORGESTREL) [Concomitant]
     Active Substance: LEVONORGESTREL
     Dosage: UNK
  9. ENOXAPARIN SODIUM. [Concomitant]
     Active Substance: ENOXAPARIN SODIUM
     Dosage: UNK
  10. FOLLISTIM AQ [Suspect]
     Active Substance: FOLLITROPIN
     Indication: INFERTILITY FEMALE
     Dosage: 100 UNITS DAILY, STRENGTH: 600 IU/0.72 MILLILITER
     Route: 058
     Dates: start: 20200122, end: 20200423
  11. AZITHROMYCIN ANHYDROUS. [Concomitant]
     Active Substance: AZITHROMYCIN ANHYDROUS
     Dosage: UNK
  12. MINERALS (UNSPECIFIED) (+) VITAMINS (UNSPECIFIED) [Suspect]
     Active Substance: MINERALS\VITAMINS
     Dosage: ONCE DAILY
     Route: 048

REACTIONS (4)
  - Endometriosis [Recovered/Resolved]
  - Pelvic adhesions [Recovered/Resolved]
  - Uterine leiomyoma [Recovered/Resolved]
  - Haemorrhagic ovarian cyst [Recovered/Resolved]
